FAERS Safety Report 23250011 (Version 2)
Quarter: 2024Q3

REPORT INFORMATION
  Report Type: Spontaneous
  Country: KR (occurrence: KR)
  Receive Date: 20231201
  Receipt Date: 20240702
  Transmission Date: 20241017
  Serious: Yes (Other)
  Sender: REGENERON
  Company Number: KR-BAYER-2023A171214

PATIENT
  Sex: Male

DRUGS (1)
  1. EYLEA [Suspect]
     Active Substance: AFLIBERCEPT
     Indication: Neovascular age-related macular degeneration
     Dosage: UNK, STRENGTH: 40MG/ML

REACTIONS (1)
  - Neovascular age-related macular degeneration [Recovered/Resolved]
